FAERS Safety Report 23139863 (Version 1)
Quarter: 2023Q4

REPORT INFORMATION
  Report Type: Report from Study
  Country: ES (occurrence: ES)
  Receive Date: 20231102
  Receipt Date: 20231102
  Transmission Date: 20240110
  Serious: No
  Sender: FDA-Public Use
  Company Number: ES-BIOGEN-2023BI01233007

PATIENT
  Age: 72 Year
  Sex: Female
  Weight: 73.1 kg

DRUGS (8)
  1. ADUCANUMAB [Suspect]
     Active Substance: ADUCANUMAB
     Indication: Dementia Alzheimer^s type
     Dosage: TITRATION PERIOD
     Route: 050
     Dates: start: 20230710, end: 20230710
  2. ADUCANUMAB [Suspect]
     Active Substance: ADUCANUMAB
     Dosage: TITRATION PERIOD
     Route: 050
     Dates: start: 20230816, end: 20230816
  3. ADUCANUMAB [Suspect]
     Active Substance: ADUCANUMAB
     Dosage: TITRATION PERIOD
     Route: 050
     Dates: start: 20230908, end: 20230908
  4. ADUCANUMAB [Suspect]
     Active Substance: ADUCANUMAB
     Dosage: TITRATION PERIOD
     Route: 050
     Dates: start: 20231004, end: 20231004
  5. NEURACEQ [Suspect]
     Active Substance: FLORBETABEN F-18
     Indication: Positron emission tomogram
     Route: 050
     Dates: start: 20230627, end: 20230627
  6. SIMVASTATIN [Concomitant]
     Active Substance: SIMVASTATIN
     Route: 050
     Dates: start: 2013
  7. RIFAXIMIN [Concomitant]
     Active Substance: RIFAXIMIN
     Route: 050
     Dates: start: 2021
  8. OMEPRAZOLE [Concomitant]
     Active Substance: OMEPRAZOLE
     Route: 050
     Dates: start: 2013

REACTIONS (1)
  - Amyloid related imaging abnormality-oedema/effusion [Not Recovered/Not Resolved]

NARRATIVE: CASE EVENT DATE: 20231023
